FAERS Safety Report 13551131 (Version 1)
Quarter: 2017Q2

REPORT INFORMATION
  Report Type: Spontaneous
  Country: CH (occurrence: CH)
  Receive Date: 20170516
  Receipt Date: 20170516
  Transmission Date: 20170830
  Serious: Yes (Other)
  Sender: FDA-Public Use
  Company Number: CH-PFIZER INC-2017205359

PATIENT

DRUGS (2)
  1. ANXIOLIT [Suspect]
     Active Substance: OXAZEPAM
     Dosage: 1 DF (TABLET), 1X/DAY (START OF ADMINISTRATION UNKNOWN)
     Route: 064
     Dates: start: 2015
  2. ZOLOFT [Suspect]
     Active Substance: SERTRALINE HYDROCHLORIDE
     Dosage: 100 MG, 1X/DAY IN THE EVENING (START OF ADMINISTRATION UNKNOWN)
     Route: 064
     Dates: start: 2015

REACTIONS (4)
  - Sleep disorder [Unknown]
  - Maternal exposure during pregnancy [Unknown]
  - Exposure during breast feeding [Unknown]
  - Foetal distress syndrome [Unknown]

NARRATIVE: CASE EVENT DATE: 201512
